FAERS Safety Report 6661521-4 (Version None)
Quarter: 2010Q1

REPORT INFORMATION
  Report Type: 
  Country: None (occurrence: None)
  Receive Date: 20100331
  Receipt Date: 20100324
  Transmission Date: 20100710
  Serious: Yes (Death, Hospitalization, Disabling)
  Sender: FDA-Public Use
  Company Number: JP-SANOFI-AVENTIS-2010SA004797

PATIENT
  Age: 83 Year
  Sex: Male
  Weight: 60 kg

DRUGS (23)
  1. PLAVIX [Suspect]
     Route: 048
     Dates: start: 20090911, end: 20090916
  2. PLAVIX [Suspect]
     Route: 048
     Dates: start: 20090917, end: 20090924
  3. ASPIRIN [Suspect]
     Dosage: EVERY MORNING
     Route: 048
     Dates: start: 20090830, end: 20091014
  4. BERAPROST SODIUM [Suspect]
     Route: 048
     Dates: start: 20090829, end: 20090930
  5. CONTRAST MEDIA [Suspect]
     Route: 065
     Dates: start: 20090911, end: 20090911
  6. HEPARIN [Concomitant]
     Dosage: DOSE:10000 UNIT(S)
     Route: 042
     Dates: start: 20090911, end: 20090911
  7. ALOSITOL [Concomitant]
     Route: 048
     Dates: start: 20090829, end: 20090930
  8. LIVACT [Concomitant]
     Route: 048
     Dates: start: 20090829, end: 20091008
  9. LASIX [Concomitant]
     Route: 048
     Dates: end: 20091014
  10. LASIX [Concomitant]
     Route: 065
     Dates: start: 20090911, end: 20090911
  11. LASIX [Concomitant]
     Route: 065
     Dates: start: 20090912, end: 20090912
  12. LASIX [Concomitant]
     Route: 065
     Dates: start: 20090913, end: 20090913
  13. LASIX [Concomitant]
     Route: 065
     Dates: start: 20090914, end: 20090925
  14. EPLERENONE [Concomitant]
     Route: 048
     Dates: start: 20090908, end: 20091014
  15. MUCOSOLVAN [Concomitant]
     Route: 048
     Dates: start: 20090830, end: 20090916
  16. LANSOPRAZOLE [Concomitant]
     Route: 048
     Dates: start: 20090830, end: 20091014
  17. COVERSYL /FRA/ [Concomitant]
     Route: 048
     Dates: start: 20090903, end: 20091014
  18. ALOSENN [Concomitant]
     Route: 048
     Dates: end: 20091014
  19. PORTOLAC [Concomitant]
     Route: 048
     Dates: start: 20090902, end: 20091014
  20. EPOGIN [Concomitant]
     Dosage: DOSE:12000 UNIT(S)
     Route: 065
     Dates: start: 20090923, end: 20090923
  21. BLOOD CELLS, PACKED HUMAN [Concomitant]
     Indication: ANAEMIA
     Dosage: DOSE:2 UNIT(S)
     Route: 065
     Dates: start: 20090912, end: 20090912
  22. BLOOD CELLS, PACKED HUMAN [Concomitant]
     Dosage: DOSE:2 UNIT(S)
     Route: 065
     Dates: start: 20090914, end: 20090914
  23. KIDMIN [Concomitant]
     Route: 065
     Dates: start: 20090923, end: 20090925

REACTIONS (5)
  - ANAEMIA [None]
  - GASTROINTESTINAL HAEMORRHAGE [None]
  - HEPATIC CIRRHOSIS [None]
  - HEPATIC CONGESTION [None]
  - RENAL IMPAIRMENT [None]
